FAERS Safety Report 10470421 (Version 1)
Quarter: 2014Q3

REPORT INFORMATION
  Report Type: Spontaneous
  Country: FR (occurrence: FR)
  Receive Date: 20140923
  Receipt Date: 20140923
  Transmission Date: 20150326
  Serious: Yes (Other)
  Sender: FDA-Public Use
  Company Number: FR-MYLANLABS-2014M1004953

PATIENT

DRUGS (3)
  1. LOSARTAN [Concomitant]
     Active Substance: LOSARTAN
     Indication: ESSENTIAL HYPERTENSION
     Route: 065
  2. PRAVASTATIN [Suspect]
     Active Substance: PRAVASTATIN\PRAVASTATIN SODIUM
     Indication: DYSLIPIDAEMIA
     Dosage: 20 MG, QD
     Route: 065
  3. HYDROCHLOROTHIAZIDE. [Concomitant]
     Active Substance: HYDROCHLOROTHIAZIDE
     Indication: ESSENTIAL HYPERTENSION
     Route: 065

REACTIONS (4)
  - Weight decreased [Unknown]
  - Abdominal pain [Unknown]
  - Dyspnoea [Unknown]
  - Immune-mediated necrotising myopathy [Recovering/Resolving]
